FAERS Safety Report 21224207 (Version 1)
Quarter: 2022Q3

REPORT INFORMATION
  Report Type: Spontaneous
  Country: US (occurrence: None)
  Receive Date: 20220817
  Receipt Date: 20220817
  Transmission Date: 20221027
  Serious: No
  Sender: FDA-Public Use
  Company Number: US-AYTU-2022-AYT-00440

PATIENT
  Age: 10 Year
  Sex: Male

DRUGS (1)
  1. COTEMPLA XR-ODT [Suspect]
     Active Substance: METHYLPHENIDATE
     Indication: Product used for unknown indication
     Route: 048
     Dates: start: 202111

REACTIONS (2)
  - Oral pain [Unknown]
  - Product use complaint [Unknown]
